FAERS Safety Report 12939293 (Version 1)
Quarter: 2016Q4

REPORT INFORMATION
  Report Type: Spontaneous
  Country: US (occurrence: US)
  Receive Date: 20161114
  Receipt Date: 20161114
  Transmission Date: 20170207
  Serious: Yes (Other)
  Sender: FDA-Public Use
  Company Number: None

PATIENT
  Age: 74 Year
  Sex: Male
  Weight: 90 kg

DRUGS (1)
  1. AMLODIPINE BESYLATE LUPIN PHARMACE [Suspect]
     Active Substance: AMLODIPINE BESYLATE
     Indication: BLOOD PRESSURE MEASUREMENT
     Dosage: ?          OTHER STRENGTH:5;QUANTITY:1 TABLET(S);?
     Route: 048

REACTIONS (3)
  - Paraesthesia [None]
  - Joint swelling [None]
  - Gingival hypertrophy [None]

NARRATIVE: CASE EVENT DATE: 20160601
